FAERS Safety Report 8130890-0 (Version None)
Quarter: 2012Q1

REPORT INFORMATION
  Report Type: 
  Country: None (occurrence: None)
  Receive Date: 20120213
  Receipt Date: 20120206
  Transmission Date: 20120608
  Serious: Yes (Other)
  Sender: FDA-Public Use
  Company Number: US-PFIZER INC-2012032381

PATIENT
  Sex: Male

DRUGS (4)
  1. NEURONTIN [Suspect]
     Indication: NEOPLASM MALIGNANT
  2. NEURONTIN [Suspect]
     Indication: SCIATICA
     Dosage: UNK
  3. NEURONTIN [Suspect]
     Indication: SPONDYLOLISTHESIS
  4. MECLIZINE [Suspect]
     Indication: DIZZINESS
     Dosage: 25 MG, UNK

REACTIONS (8)
  - ARRHYTHMIA [None]
  - DYSPNOEA [None]
  - DIZZINESS [None]
  - COUGH [None]
  - MALAISE [None]
  - ALOPECIA [None]
  - DRUG INEFFECTIVE [None]
  - HEADACHE [None]
